FAERS Safety Report 7710923-3 (Version None)
Quarter: 2011Q3

REPORT INFORMATION
  Report Type: 
  Country: None (occurrence: None)
  Receive Date: 20110825
  Receipt Date: 20110816
  Transmission Date: 20111222
  Serious: Yes (Other)
  Sender: FDA-Public Use
  Company Number: US-ASTRAZENECA-2011SE49223

PATIENT
  Age: 63 Year
  Sex: Male

DRUGS (4)
  1. CRESTOR [Suspect]
     Route: 048
  2. FISH OIL [Concomitant]
  3. PLAVIX [Concomitant]
  4. FENOFIBRATE [Concomitant]

REACTIONS (3)
  - SKIN HAEMORRHAGE [None]
  - PROSTATE CANCER [None]
  - CATARACT [None]
